FAERS Safety Report 15184709 (Version 1)
Quarter: 2018Q3

REPORT INFORMATION
  Report Type: Spontaneous
  Country: US (occurrence: US)
  Receive Date: 20180723
  Receipt Date: 20180723
  Transmission Date: 20181010
  Serious: No
  Sender: FDA-Public Use
  Company Number: US-AMGEN-USASP2018090679

PATIENT
  Age: 63 Year
  Sex: Female

DRUGS (1)
  1. REPATHA [Suspect]
     Active Substance: EVOLOCUMAB
     Indication: BLOOD CHOLESTEROL ABNORMAL
     Dosage: UNK, Q2WK
     Route: 065
     Dates: start: 201701

REACTIONS (3)
  - Pain in extremity [Unknown]
  - Musculoskeletal stiffness [Unknown]
  - Sleep disorder due to a general medical condition [Unknown]
